FAERS Safety Report 5219177-3 (Version None)
Quarter: 2007Q1

REPORT INFORMATION
  Report Type: 
  Country: None (occurrence: None)
  Receive Date: 20070125
  Receipt Date: 20070124
  Transmission Date: 20070707
  Serious: Yes (Other)
  Sender: FDA-Public Use
  Company Number: DE-GLAXOSMITHKLINE-D0052110A

PATIENT
  Age: 14 Year
  Sex: Male

DRUGS (2)
  1. LAMICTAL [Suspect]
     Route: 048
     Dates: start: 20061201
  2. VALPROATE SODIUM [Concomitant]
     Route: 048
     Dates: end: 20061201

REACTIONS (2)
  - BLOOD BILIRUBIN INCREASED [None]
  - GILBERT'S SYNDROME [None]
